FAERS Safety Report 7461008-5 (Version None)
Quarter: 2011Q2

REPORT INFORMATION
  Report Type: 
  Country: None (occurrence: None)
  Receive Date: 20110505
  Receipt Date: 20110425
  Transmission Date: 20111010
  Serious: Yes (Other)
  Sender: FDA-Public Use
  Company Number: US-ELI_LILLY_AND_COMPANY-US201005002070

PATIENT
  Sex: Female
  Weight: 58.957 kg

DRUGS (3)
  1. FORTEO [Suspect]
     Indication: OSTEOPOROSIS
     Dosage: 20 UG, DAILY (1/D)
     Dates: start: 20090501
  2. FORTEO [Suspect]
     Dosage: 20 UG, QD
     Dates: end: 20110329
  3. FORTEO [Suspect]
     Dosage: 20 UG, QD

REACTIONS (4)
  - INJECTION SITE ERYTHEMA [None]
  - HYPERCALCAEMIA [None]
  - TRANSIENT ISCHAEMIC ATTACK [None]
  - SPLENOMEGALY [None]
